FAERS Safety Report 9286505 (Version 1)
Quarter: 2013Q2

REPORT INFORMATION
  Report Type: Not Available
  Country: FR (occurrence: FR)
  Receive Date: 20130513
  Receipt Date: 20130513
  Transmission Date: 20140414
  Serious: Yes (Hospitalization)
  Sender: FDA-Public Use
  Company Number: FR-NAPPMUNDI-GBR-2013-0013899

PATIENT
  Age: 94 Year
  Sex: Female

DRUGS (13)
  1. OXYCONTIN LP 10 MG, COMPRIME PELLICULE A LIBERATION PROLONGEE [Suspect]
     Indication: PRODUCT USED FOR UNKNOWN INDICATION
     Dosage: 10 MG, BID
     Route: 048
     Dates: start: 201302
  2. LYRICA [Suspect]
     Indication: RADICULAR PAIN
     Dosage: 25 MG, BID
     Route: 048
     Dates: start: 201301, end: 20130316
  3. IMOVANE [Suspect]
     Indication: PRODUCT USED FOR UNKNOWN INDICATION
     Route: 065
  4. INEXIUM                            /01479302/ [Concomitant]
  5. LAROXYL [Concomitant]
  6. CORTANCYL [Concomitant]
  7. FOSAMAX [Concomitant]
  8. PARACETAMOL [Concomitant]
  9. PRETERAX                           /01421201/ [Concomitant]
  10. CALCIUM + D3 [Concomitant]
  11. IMODIUM [Concomitant]
  12. FORLAX                             /00754501/ [Concomitant]
  13. OPHTIM [Concomitant]

REACTIONS (6)
  - General physical health deterioration [Recovering/Resolving]
  - Altered state of consciousness [Recovered/Resolved]
  - Balance disorder [Recovered/Resolved]
  - Somnolence [Recovered/Resolved]
  - Feeling abnormal [Recovered/Resolved]
  - Confusional state [Recovering/Resolving]
